FAERS Safety Report 7361761-5 (Version None)
Quarter: 2011Q1

REPORT INFORMATION
  Report Type: 
  Country: None (occurrence: None)
  Receive Date: 20110318
  Receipt Date: 20110308
  Transmission Date: 20110831
  Serious: Yes (Hospitalization, Disabling, Other)
  Sender: FDA-Public Use
  Company Number: US-MERCK-1101USA01550

PATIENT
  Sex: Male

DRUGS (3)
  1. FOSAMAX [Suspect]
     Indication: OSTEOPOROSIS
     Route: 048
     Dates: start: 20010101, end: 20090101
  2. ACTONEL [Suspect]
     Indication: OSTEOPOROSIS
     Route: 065
  3. ZOCOR [Concomitant]
     Indication: HYPERCHOLESTEROLAEMIA
     Route: 048
     Dates: start: 19940101

REACTIONS (12)
  - TIBIA FRACTURE [None]
  - LOOSE TOOTH [None]
  - DENTAL CARIES [None]
  - OSTEONECROSIS OF JAW [None]
  - VITAMIN D DEFICIENCY [None]
  - SPINAL FRACTURE [None]
  - ORAL INFECTION [None]
  - ANKLE FRACTURE [None]
  - CALCIUM DEFICIENCY [None]
  - HYPERTENSION [None]
  - FEMUR FRACTURE [None]
  - PERIODONTAL DISEASE [None]
